FAERS Safety Report 7837692-0 (Version None)
Quarter: 2011Q4

REPORT INFORMATION
  Report Type: 
  Country: None (occurrence: None)
  Receive Date: 20111024
  Receipt Date: 20111014
  Transmission Date: 20120403
  Serious: Yes (Other)
  Sender: FDA-Public Use
  Company Number: PHEH2011US06920

PATIENT
  Sex: Male

DRUGS (3)
  1. LISINOPRIL [Concomitant]
     Dosage: 20 MG, UNK
  2. ACTOPLUS MET [Concomitant]
  3. GLEEVEC [Suspect]
     Dosage: 400 MG, DAY

REACTIONS (4)
  - HERPES ZOSTER [None]
  - HERNIA [None]
  - DYSPNOEA [None]
  - PALPITATIONS [None]
